FAERS Safety Report 9298804 (Version 1)
Quarter: 2013Q2

REPORT INFORMATION
  Report Type: Spontaneous
  Country: ES (occurrence: ES)
  Receive Date: 20130520
  Receipt Date: 20130520
  Transmission Date: 20140414
  Serious: Yes (Other)
  Sender: FDA-Public Use
  Company Number: ES-ABBOTT-13P-144-1079652-00

PATIENT
  Age: 54 Year
  Sex: Male
  Weight: 79 kg

DRUGS (1)
  1. PROCRIN [Suspect]
     Indication: PROSTATE CANCER
     Route: 058
     Dates: start: 201302

REACTIONS (1)
  - Injection site cyst [Recovered/Resolved]
